FAERS Safety Report 8010938-4 (Version None)
Quarter: 2011Q4

REPORT INFORMATION
  Report Type: 
  Country: None (occurrence: None)
  Receive Date: 20111228
  Receipt Date: 20111222
  Transmission Date: 20120403
  Serious: Yes (Hospitalization)
  Sender: FDA-Public Use
  Company Number: AT-ROCHE-522789

PATIENT
  Sex: Male
  Weight: 63.8 kg

DRUGS (7)
  1. XELODA [Suspect]
     Dosage: DOSE REDUCED
     Route: 048
  2. AVASTIN [Suspect]
     Dosage: DOSE REDUCED
     Route: 042
  3. PROTHIPENDYL [Suspect]
     Indication: INSOMNIA
     Dosage: DOSE: 1/2
     Route: 048
  4. AVASTIN [Suspect]
     Indication: COLON CANCER
     Route: 042
     Dates: start: 20070720, end: 20070816
  5. BISOPROLOL FUMARATE [Suspect]
     Indication: TACHYCARDIA
     Dosage: IN THE MORNING
     Route: 048
  6. XELODA [Suspect]
     Indication: COLON CANCER
     Route: 048
     Dates: start: 20070720, end: 20070826
  7. PANTOPRAZOLE SODIUM [Suspect]
     Indication: PROPHYLAXIS
     Dosage: DOSE: 1
     Route: 048

REACTIONS (3)
  - MUCOSAL INFLAMMATION [None]
  - CIRCULATORY COLLAPSE [None]
  - GENERAL PHYSICAL HEALTH DETERIORATION [None]
